FAERS Safety Report 10082708 (Version 1)
Quarter: 2014Q2

REPORT INFORMATION
  Report Type: Spontaneous
  Country: US (occurrence: US)
  Receive Date: 20140416
  Receipt Date: 20140416
  Transmission Date: 20141212
  Serious: No
  Sender: FDA-Public Use
  Company Number: US-009507513-1403USA012152

PATIENT
  Sex: Female

DRUGS (2)
  1. STROMECTOL [Suspect]
     Indication: ACARODERMATITIS
     Dosage: (6) 3 MG, FIRST DOSE
     Route: 048
     Dates: start: 20140108
  2. STROMECTOL [Suspect]
     Dosage: (6) 3 MG, SECOND DOSE
     Route: 048
     Dates: start: 20140115

REACTIONS (2)
  - Insomnia [Unknown]
  - Maternal exposure before pregnancy [Unknown]
